FAERS Safety Report 9760306 (Version 3)
Quarter: 2015Q3

REPORT INFORMATION
  Report Type: Spontaneous
  Country: US (occurrence: US)
  Receive Date: 20131216
  Receipt Date: 20150806
  Transmission Date: 20151125
  Serious: No
  Sender: FDA-Public Use
  Company Number: US-GILEAD-2010-0028899

PATIENT
  Age: 69 Year
  Sex: Female
  Weight: 108.86 kg

DRUGS (14)
  1. NITROGLYCERIN. [Concomitant]
     Active Substance: NITROGLYCERIN
  2. LETAIRIS [Suspect]
     Active Substance: AMBRISENTAN
     Indication: PULMONARY ARTERIAL HYPERTENSION
     Route: 048
     Dates: start: 20100416
  3. LASIX [Concomitant]
     Active Substance: FUROSEMIDE
  4. POTASSIUM CHLORIDE. [Concomitant]
     Active Substance: POTASSIUM CHLORIDE
  5. ASPIRIN. [Concomitant]
     Active Substance: ASPIRIN
  6. FERROUS SULFATE [Concomitant]
     Active Substance: FERROUS SULFATE\FERROUS SULFATE, DRIED
  7. DIOVAN [Concomitant]
     Active Substance: VALSARTAN
  8. METOPROLOL [Concomitant]
     Active Substance: METOPROLOL
  9. SIMVASTATIN. [Concomitant]
     Active Substance: SIMVASTATIN
  10. IMDUR [Concomitant]
     Active Substance: ISOSORBIDE MONONITRATE
  11. PLAVIX [Concomitant]
     Active Substance: CLOPIDOGREL BISULFATE
  12. SYNTHROID [Concomitant]
     Active Substance: LEVOTHYROXINE SODIUM
  13. FOLIC ACID. [Concomitant]
     Active Substance: FOLIC ACID
  14. NEXIUM [Concomitant]
     Active Substance: ESOMEPRAZOLE MAGNESIUM

REACTIONS (1)
  - Peripheral swelling [Unknown]

NARRATIVE: CASE EVENT DATE: 20100305
